FAERS Safety Report 4751767-4 (Version None)
Quarter: 2005Q3

REPORT INFORMATION
  Report Type: 
  Country: None (occurrence: None)
  Receive Date: 20050822
  Receipt Date: 20050304
  Transmission Date: 20060218
  Serious: Yes (Other)
  Sender: FDA-Public Use
  Company Number: 2005001497

PATIENT
  Age: 14 Year
  Sex: Male
  Weight: 54.4316 kg

DRUGS (2)
  1. ZARONTIN [Suspect]
     Indication: PETIT MAL EPILEPSY
     Dosage: 750 MG (250 MG, 3 IN 1 D), ORAL
     Route: 048
     Dates: start: 20040101
  2. VITAMINS [Concomitant]

REACTIONS (7)
  - DEHYDRATION [None]
  - FEELING ABNORMAL [None]
  - GRAND MAL CONVULSION [None]
  - HICCUPS [None]
  - INFLUENZA [None]
  - NASOPHARYNGITIS [None]
  - PETIT MAL EPILEPSY [None]
